FAERS Safety Report 25206499 (Version 2)
Quarter: 2025Q2

REPORT INFORMATION
  Report Type: Spontaneous
  Country: CN (occurrence: CN)
  Receive Date: 20250417
  Receipt Date: 20250429
  Transmission Date: 20250716
  Serious: Yes (Other)
  Sender: UCB
  Company Number: CN-UCBSA-2025021134

PATIENT
  Age: 3 Year
  Sex: Female
  Weight: 16 kg

DRUGS (3)
  1. VIMPAT [Suspect]
     Active Substance: LACOSAMIDE
     Indication: Epilepsy
     Dosage: 50 MILLIGRAM, 2X/DAY (BID)
     Dates: start: 202408
  2. VIMPAT [Suspect]
     Active Substance: LACOSAMIDE
     Dates: start: 20250318
  3. LEVETIRACETAM [Concomitant]
     Active Substance: LEVETIRACETAM
     Indication: Epilepsy
     Dosage: 3 MILLILITER, 2X/DAY (BID)

REACTIONS (4)
  - Generalised tonic-clonic seizure [Recovered/Resolved]
  - Product use complaint [Unknown]
  - Off label use [Unknown]
  - Drug ineffective [Unknown]

NARRATIVE: CASE EVENT DATE: 20240801
